FAERS Safety Report 10066765 (Version 2)
Quarter: 2014Q2

REPORT INFORMATION
  Report Type: Report from Study
  Country: VE (occurrence: VE)
  Receive Date: 20140408
  Receipt Date: 20140523
  Transmission Date: 20141212
  Serious: Yes (Other)
  Sender: FDA-Public Use
  Company Number: VE-ABBVIE-14P-178-1221963-00

PATIENT
  Age: 62 Year
  Sex: Female
  Weight: 68 kg

DRUGS (1)
  1. HUMIRA [Suspect]
     Indication: PSORIASIS
     Dosage: EVERY 2 WEEKS
     Route: 058
     Dates: start: 20120813, end: 201401

REACTIONS (1)
  - Tuberculin test positive [Not Recovered/Not Resolved]
